FAERS Safety Report 22349001 (Version 1)
Quarter: 2023Q2

REPORT INFORMATION
  Report Type: Other
  Country: JP (occurrence: JP)
  Receive Date: 20230522
  Receipt Date: 20230522
  Transmission Date: 20230722
  Serious: Yes (Death, Other)
  Sender: FDA-Public Use
  Company Number: JP-CHUGAI-2023009454

PATIENT
  Age: 65 Year
  Sex: Male
  Weight: 69 kg

DRUGS (3)
  1. AVASTIN [Suspect]
     Active Substance: BEVACIZUMAB
     Indication: Malignant glioma
     Dosage: UNK
     Route: 041
     Dates: start: 20191030, end: 20210121
  2. TEMODAL [Concomitant]
     Active Substance: TEMOZOLOMIDE
     Indication: Malignant glioma
     Dosage: UNK
     Route: 065
     Dates: start: 20191030, end: 20200604
  3. SULFAMETHOXAZOLE\TRIMETHOPRIM [Concomitant]
     Active Substance: SULFAMETHOXAZOLE\TRIMETHOPRIM
     Dosage: UNK
     Route: 065
     Dates: start: 20191030, end: 20200702

REACTIONS (2)
  - Cerebral infarction [Recovering/Resolving]
  - Glioblastoma [Fatal]

NARRATIVE: CASE EVENT DATE: 20191102
